FAERS Safety Report 6851059-3 (Version None)
Quarter: 2010Q3

REPORT INFORMATION
  Report Type: 
  Country: None (occurrence: None)
  Receive Date: 20100716
  Receipt Date: 20071024
  Transmission Date: 20110219
  Serious: No
  Sender: FDA-Public Use
  Company Number: US-PFIZER INC-2007091973

PATIENT
  Sex: Female
  Weight: 57.727 kg

DRUGS (1)
  1. CHANTIX [Suspect]
     Indication: SMOKING CESSATION THERAPY
     Dates: start: 20071001, end: 20071024

REACTIONS (7)
  - ABDOMINAL DISCOMFORT [None]
  - APHAGIA [None]
  - ASTHMA [None]
  - FATIGUE [None]
  - FEELING ABNORMAL [None]
  - MALAISE [None]
  - OROPHARYNGEAL PAIN [None]
